FAERS Safety Report 16860519 (Version 8)
Quarter: 2020Q3

REPORT INFORMATION
  Report Type: Spontaneous
  Country: US (occurrence: US)
  Receive Date: 20190927
  Receipt Date: 20200903
  Transmission Date: 20201102
  Serious: Yes (Death, Hospitalization)
  Sender: FDA-Public Use
  Company Number: US-PFIZER INC-2019413254

PATIENT
  Age: 74 Year
  Sex: Male
  Weight: 68.49 kg

DRUGS (15)
  1. POMALYST [Concomitant]
     Active Substance: POMALIDOMIDE
     Dosage: UNK
  2. SPIRONOLACTONE. [Concomitant]
     Active Substance: SPIRONOLACTONE
     Dosage: UNK
  3. ZINC OXIDE. [Concomitant]
     Active Substance: ZINC OXIDE
     Indication: WOUND
     Dosage: UNK
  4. VYNDAQEL [Suspect]
     Active Substance: TAFAMIDIS MEGLUMINE
     Indication: HEREDITARY NEUROPATHIC AMYLOIDOSIS
     Dosage: 80 MG, 1X/DAY  [4 CAPSULES (80MG) BY MOUTH ONCE A DAY]
     Route: 048
  5. TORSEMIDE. [Concomitant]
     Active Substance: TORSEMIDE
     Dosage: UNK, AS NEEDED
  6. POTASSIUM [Concomitant]
     Active Substance: POTASSIUM
     Dosage: UNK, AS NEEDED
  7. ACYCLOVIR [ACICLOVIR] [Concomitant]
     Active Substance: ACYCLOVIR
     Dosage: 0.5 DF, DAILY (DOSE UNKNOWN, HALF CAPSULE DAILY)
  8. TORSEMIDE. [Concomitant]
     Active Substance: TORSEMIDE
     Indication: POLYURIA
     Dosage: 20 MG, 1X/DAY
  9. TRAMADOL. [Concomitant]
     Active Substance: TRAMADOL
     Indication: BACK PAIN
     Dosage: UNK
  10. ELIQUIS [Concomitant]
     Active Substance: APIXABAN
     Indication: ANTICOAGULANT THERAPY
     Dosage: 5 MG, 2X/DAY(MORNING AND EVENING)
  11. ALLOPURINOL. [Concomitant]
     Active Substance: ALLOPURINOL
     Dosage: UNK(DOSE UNKNOWN AND FREQUENCY UNKNOWN TO REPORTER)
  12. PRAVASTATIN. [Concomitant]
     Active Substance: PRAVASTATIN
     Dosage: UNK
  13. TAMSULOSIN [Concomitant]
     Active Substance: TAMSULOSIN
     Dosage: UNK
  14. VYNDAQEL [Suspect]
     Active Substance: TAFAMIDIS MEGLUMINE
     Indication: AMYLOIDOSIS
     Dosage: 80 MG, DAILY (FOUR CAPSULES A DAY)
     Route: 048
     Dates: start: 2018
  15. VIT D [Concomitant]
     Active Substance: VITAMIN D NOS
     Dosage: UNK

REACTIONS (9)
  - Off label use [Unknown]
  - Pneumonia [Not Recovered/Not Resolved]
  - Asthenia [Unknown]
  - Disorientation [Unknown]
  - Ligament sprain [Not Recovered/Not Resolved]
  - Muscle spasms [Unknown]
  - Cardio-respiratory arrest [Fatal]
  - Fall [Not Recovered/Not Resolved]
  - Product use in unapproved indication [Unknown]

NARRATIVE: CASE EVENT DATE: 2019
